FAERS Safety Report 17753084 (Version 1)
Quarter: 2020Q2

REPORT INFORMATION
  Report Type: Spontaneous
  Country: US (occurrence: US)
  Receive Date: 20200506
  Receipt Date: 20200506
  Transmission Date: 20200714
  Serious: No
  Sender: FDA-Public Use
  Company Number: US-ROCHE-2401805

PATIENT
  Sex: Male

DRUGS (1)
  1. ESBRIET [Suspect]
     Active Substance: PIRFENIDONE
     Indication: IDIOPATHIC PULMONARY FIBROSIS
     Dosage: 3 TABLETS, 3 TIMES PER DAY ;ONGOING: UNKNOWN
     Route: 048
     Dates: start: 20181218

REACTIONS (2)
  - Pruritus [Recovering/Resolving]
  - Rash [Not Recovered/Not Resolved]
